FAERS Safety Report 14229621 (Version 1)
Quarter: 2017Q4

REPORT INFORMATION
  Report Type: Report from Study
  Country: AU (occurrence: AU)
  Receive Date: 20171128
  Receipt Date: 20171128
  Transmission Date: 20180321
  Serious: Yes (Death)
  Sender: FDA-Public Use
  Company Number: PHHY2017AU142059

PATIENT
  Age: 69 Year
  Sex: Male

DRUGS (3)
  1. CLOZARIL [Suspect]
     Active Substance: CLOZAPINE
     Dosage: 600 MG, UNK
     Route: 048
  2. VALPROATE SODIUM. [Suspect]
     Active Substance: VALPROATE SODIUM
     Indication: PRODUCT USED FOR UNKNOWN INDICATION
     Dosage: UNK UNK, BID (600 MG MORNING AND 1000 MG NIGHT )
     Route: 065
  3. CLOZARIL [Suspect]
     Active Substance: CLOZAPINE
     Indication: SCHIZOPHRENIA
     Dosage: 500 MG, UNK
     Route: 048
     Dates: start: 20150227

REACTIONS (9)
  - Respiratory failure [Fatal]
  - Aspiration [Fatal]
  - Post procedural complication [Fatal]
  - Cardio-respiratory arrest [Fatal]
  - Faecaloma [Fatal]
  - General physical health deterioration [Fatal]
  - Ileus [Fatal]
  - Prostate cancer [Fatal]
  - Femur fracture [Fatal]

NARRATIVE: CASE EVENT DATE: 20170912
